FAERS Safety Report 20729184 (Version 1)
Quarter: 2022Q2

REPORT INFORMATION
  Report Type: Report from Study
  Country: CO (occurrence: CO)
  Receive Date: 20220420
  Receipt Date: 20220420
  Transmission Date: 20220721
  Serious: Yes (Other)
  Sender: FDA-Public Use
  Company Number: CO-NOVARTISPH-NVSC2022CO067326

PATIENT
  Age: 74 Year
  Sex: Male

DRUGS (11)
  1. COSENTYX [Suspect]
     Active Substance: SECUKINUMAB
     Indication: Psoriasis
     Dosage: 300 MG, QMO
     Route: 058
  2. COSENTYX [Suspect]
     Active Substance: SECUKINUMAB
     Dosage: 300 MG, QMO (START DATE 3 YEARS AGO)
     Route: 058
  3. METFORMIN [Suspect]
     Active Substance: METFORMIN HYDROCHLORIDE
     Indication: Diabetes mellitus
     Dosage: 850 MG, Q12H
     Route: 065
  4. METOPROLOL [Suspect]
     Active Substance: METOPROLOL
     Indication: Hypertension
     Dosage: 50 MG, QD
     Route: 048
  5. ENALAPRIL [Concomitant]
     Active Substance: ENALAPRIL
     Indication: Hypertension
     Dosage: 20 MG, QD
     Route: 065
  6. CLONIDINE [Concomitant]
     Active Substance: CLONIDINE
     Indication: Hypertension
     Dosage: 0.5 MG, Q12H
     Route: 065
  7. FUROSEMIDE [Concomitant]
     Active Substance: FUROSEMIDE
     Indication: Fluid imbalance
     Dosage: 40 MG, QD (8 YEARS AGO)
     Route: 065
  8. RISPERIDONE [Concomitant]
     Active Substance: RISPERIDONE
     Indication: Mental disorder
     Dosage: 2 MG, QD (3 YEARS AGO)
     Route: 048
  9. TRAZODONE [Concomitant]
     Active Substance: TRAZODONE HYDROCHLORIDE
     Indication: Insomnia
     Dosage: 50 MG, QD (3 YEARS AGO)
     Route: 048
  10. BIPERIDEN [Concomitant]
     Active Substance: BIPERIDEN
     Indication: Memory impairment
     Dosage: 2 MG, QD (3 YEARS AGO)
     Route: 048
  11. NIFEDIPINE [Concomitant]
     Active Substance: NIFEDIPINE
     Indication: Memory impairment
     Dosage: 30 MG, Q12H (8 YEARS AGO)
     Route: 048

REACTIONS (5)
  - Seizure [Unknown]
  - Fall [Recovering/Resolving]
  - Joint injury [Recovering/Resolving]
  - Illness [Unknown]
  - Prescribed underdose [Unknown]

NARRATIVE: CASE EVENT DATE: 20211001
